FAERS Safety Report 17030255 (Version 1)
Quarter: 2019Q4

REPORT INFORMATION
  Report Type: Spontaneous
  Country: US (occurrence: US)
  Receive Date: 20191114
  Receipt Date: 20191114
  Transmission Date: 20200122
  Serious: No
  Sender: FDA-Public Use
  Company Number: US-MYLANLABS-2019M1107250

PATIENT
  Sex: Male

DRUGS (1)
  1. CYSTAGON [Suspect]
     Active Substance: CYSTEAMINE BITARTRATE
     Indication: RENAL TRANSPLANT
     Dosage: 50 MILLIGRAM, Q6H
     Route: 048
     Dates: start: 200301

REACTIONS (1)
  - Malaise [Unknown]
